FAERS Safety Report 24750475 (Version 1)
Quarter: 2024Q4

REPORT INFORMATION
  Report Type: Spontaneous
  Country: AU (occurrence: AU)
  Receive Date: 20241218
  Receipt Date: 20241218
  Transmission Date: 20250114
  Serious: Yes (Hospitalization)
  Sender: SANDOZ
  Company Number: None

PATIENT
  Age: 56 Year
  Sex: Male

DRUGS (2)
  1. ADALIMUMAB [Suspect]
     Active Substance: ADALIMUMAB
     Dosage: 160 MG
     Route: 058
     Dates: start: 20240917, end: 20240917
  2. ADALIMUMAB [Suspect]
     Active Substance: ADALIMUMAB
     Indication: Crohn^s disease
     Dosage: 80 MG
     Route: 058

REACTIONS (3)
  - Pulmonary thrombosis [Recovering/Resolving]
  - Pneumonia [Recovering/Resolving]
  - Depressed mood [Unknown]

NARRATIVE: CASE EVENT DATE: 20240101
